FAERS Safety Report 9606867 (Version 2)
Quarter: 2014Q2

REPORT INFORMATION
  Report Type: Spontaneous
  Country: US (occurrence: US)
  Receive Date: 20131008
  Receipt Date: 20140519
  Transmission Date: 20141212
  Serious: No
  Sender: FDA-Public Use
  Company Number: US-AMGEN-USASP2013067969

PATIENT
  Age: 81 Year
  Sex: Female
  Weight: 53.97 kg

DRUGS (7)
  1. PROLIA [Suspect]
     Indication: OSTEOPOROSIS POSTMENOPAUSAL
     Dosage: 60 MG, Q6MO
     Route: 065
     Dates: start: 20130920
  2. ZOCOR [Concomitant]
     Route: 065
  3. TOPROL [Concomitant]
     Route: 065
  4. XANAX [Concomitant]
     Route: 065
  5. HYDROCODONE [Concomitant]
     Route: 065
  6. FLUTICASONE [Concomitant]
  7. SYMBICORT [Concomitant]

REACTIONS (13)
  - Rash maculo-papular [Recovered/Resolved]
  - Cough [Unknown]
  - Blood disorder [Unknown]
  - Paraesthesia [Unknown]
  - Hypoaesthesia [Unknown]
  - Blood phosphorus decreased [Unknown]
  - Drug eruption [Unknown]
  - Skin lesion [Recovered/Resolved]
  - Arthralgia [Unknown]
  - Myalgia [Recovering/Resolving]
  - Erythema [Unknown]
  - Pain in extremity [Unknown]
  - Urticaria [Unknown]
